FAERS Safety Report 9837551 (Version 2)
Quarter: 2014Q1

REPORT INFORMATION
  Report Type: Report from Study
  Country: US (occurrence: US)
  Receive Date: 20140123
  Receipt Date: 20140123
  Transmission Date: 20141002
  Serious: Yes (Other)
  Sender: FDA-Public Use
  Company Number: US-ALEXION-A201304389

PATIENT
  Age: 3 Year
  Sex: Male

DRUGS (4)
  1. SOLIRIS [Suspect]
     Indication: BONE MARROW TRANSPLANT
     Dosage: 600 MG Q3 DAYS UNTIL STABLE
     Route: 042
     Dates: start: 20131211
  2. SOLIRIS [Suspect]
     Indication: OFF LABEL USE
  3. TACROLIMUS [Concomitant]
  4. SIROLIMUS [Concomitant]

REACTIONS (3)
  - Erythema infectiosum [Unknown]
  - Human herpesvirus 6 infection [Unknown]
  - Off label use [Unknown]
